FAERS Safety Report 12270263 (Version 1)
Quarter: 2016Q2

REPORT INFORMATION
  Report Type: Spontaneous
  Country: US (occurrence: None)
  Receive Date: 20160414
  Receipt Date: 20160414
  Transmission Date: 20160815
  Serious: Yes (Death)
  Sender: FDA-Public Use
  Company Number: None

PATIENT
  Age: 55 Year
  Sex: Female
  Weight: 72.58 kg

DRUGS (7)
  1. EVAMIST [Concomitant]
     Active Substance: ESTRADIOL
  2. WOMEN^S MULTIVITAMIN [Concomitant]
  3. AZITHROMYCIN TABLETS USP 250 MG [Suspect]
     Active Substance: AZITHROMYCIN MONOHYDRATE
     Indication: COUGH
     Dosage: 6 TABLET (S) DAY1-2; THEN 1/DAY TAKEN BY MOUTH
     Route: 048
     Dates: start: 20151105
  4. STEROID SHOT [Concomitant]
     Active Substance: UNSPECIFIED INGREDIENT
  5. ZYRTEC [Concomitant]
     Active Substance: CETIRIZINE HYDROCHLORIDE
  6. BENZONATATE. [Concomitant]
     Active Substance: BENZONATATE
  7. Z-PACK [Concomitant]
     Active Substance: AZITHROMYCIN DIHYDRATE

REACTIONS (2)
  - Cardiac arrest [None]
  - Brain death [None]

NARRATIVE: CASE EVENT DATE: 20151105
